FAERS Safety Report 12520655 (Version 1)
Quarter: 2016Q3

REPORT INFORMATION
  Report Type: Spontaneous
  Country: CN (occurrence: CN)
  Receive Date: 20160701
  Receipt Date: 20160701
  Transmission Date: 20161109
  Serious: Yes (Other)
  Sender: FDA-Public Use
  Company Number: CN-BAXTER-2016BAX033678

PATIENT
  Age: 32 Year
  Sex: Female
  Weight: 59.5 kg

DRUGS (5)
  1. OXYTOCIN. [Concomitant]
     Active Substance: OXYTOCIN
     Indication: PRODUCT USED FOR UNKNOWN INDICATION
     Dosage: 20 UNITS
     Route: 030
     Dates: start: 20151211
  2. FAT-SOLUBLE VITAMIN FOR INJECTION(II) [Suspect]
     Active Substance: VITAMINS
     Indication: SUPPORTIVE CARE
     Dosage: 2 VIALS
     Route: 041
     Dates: start: 20151211, end: 20151211
  3. MISOPROSTOL. [Concomitant]
     Active Substance: MISOPROSTOL
     Indication: PRODUCT USED FOR UNKNOWN INDICATION
     Route: 048
     Dates: start: 20151211
  4. WATER-SOLUBLE VITAMIN FOR INJECTION [Suspect]
     Active Substance: VITAMINS
     Indication: SUPPORTIVE CARE
     Dosage: 1 VIAL
     Route: 041
     Dates: start: 20151211, end: 20151211
  5. 5% GLUCOSE  INJECTION [Suspect]
     Active Substance: DEXTROSE
     Indication: MEDICATION DILUTION
     Route: 041
     Dates: start: 20151211, end: 20151211

REACTIONS (4)
  - Cyanosis [Recovered/Resolved]
  - Chest discomfort [Recovered/Resolved]
  - Infusion related reaction [None]
  - Dyspnoea [Recovered/Resolved]

NARRATIVE: CASE EVENT DATE: 20151211
